FAERS Safety Report 20364193 (Version 10)
Quarter: 2023Q2

REPORT INFORMATION
  Report Type: Spontaneous
  Country: JP (occurrence: JP)
  Receive Date: 20220121
  Receipt Date: 20230501
  Transmission Date: 20230722
  Serious: Yes (Death, Hospitalization, Other)
  Sender: FDA-Public Use
  Company Number: JP-BRISTOL-MYERS SQUIBB COMPANY-BMS-2022-006273

PATIENT
  Age: 71 Year
  Sex: Male

DRUGS (7)
  1. YERVOY [Suspect]
     Active Substance: IPILIMUMAB
     Indication: Non-small cell lung cancer recurrent
     Dosage: 1MG/KG, Q2W, NUMBER OF DAYS OF ADMINISTRATION:180 DAY
     Route: 041
     Dates: start: 20210212
  2. OPDIVO [Suspect]
     Active Substance: NIVOLUMAB
     Indication: Non-small cell lung cancer recurrent
     Dosage: 240 MG, Q2W, NUMBER OF DAYS OF ADMINISTRATION:180 DAY
     Route: 041
     Dates: start: 20210212
  3. CARBOPLATIN [Concomitant]
     Active Substance: CARBOPLATIN
     Indication: Non-small cell lung cancer recurrent
     Dosage: 5 AUC, Q3W, NUMBER OF DAYS OF ADMINISTRATION: 60 DAY
     Route: 041
     Dates: start: 20210212
  4. PEMETREXED DISODIUM [Concomitant]
     Active Substance: PEMETREXED DISODIUM
     Indication: Non-small cell lung cancer recurrent
     Dosage: 200 MG/KG, Q3W, NUMBER OF DAYS OF ADMINISTRATION: 60 DAY
     Route: 041
     Dates: start: 20210212
  5. BEVACIZUMAB [Concomitant]
     Active Substance: BEVACIZUMAB
     Indication: Product used for unknown indication
     Dosage: UNKNOWN
  6. CYCLOPHOSPHAMIDE [Concomitant]
     Active Substance: CYCLOPHOSPHAMIDE
     Indication: Product used for unknown indication
     Dosage: UNKNOWN
  7. TACROLIMUS [Concomitant]
     Active Substance: TACROLIMUS
     Indication: Product used for unknown indication
     Dosage: 2 MG, QD

REACTIONS (6)
  - Pneumocystis jirovecii pneumonia [Fatal]
  - Cytokine release syndrome [Not Recovered/Not Resolved]
  - Coagulopathy [Recovering/Resolving]
  - Lung disorder [Recovered/Resolved]
  - Non-small cell lung cancer [Fatal]
  - Off label use [Unknown]
